FAERS Safety Report 10698298 (Version 2)
Quarter: 2015Q1

REPORT INFORMATION
  Report Type: Report from Study
  Country: FR (occurrence: FR)
  Receive Date: 20150108
  Receipt Date: 20150108
  Transmission Date: 20150721
  Serious: Yes (Hospitalization, Other)
  Sender: FDA-Public Use
  Company Number: FR-SA-2014SA083060

PATIENT
  Age: 79 Year
  Sex: Male
  Weight: 81 kg

DRUGS (1)
  1. DOCETAXEL. [Suspect]
     Active Substance: DOCETAXEL
     Indication: PRODUCT USED FOR UNKNOWN INDICATION
     Route: 065

REACTIONS (37)
  - Insomnia [Unknown]
  - Dyspnoea [Recovering/Resolving]
  - Skin exfoliation [Unknown]
  - Cataract [Unknown]
  - Saliva altered [Unknown]
  - Nausea [Unknown]
  - Arthralgia [Unknown]
  - Haemorrhoids [Unknown]
  - Ageusia [Unknown]
  - Pruritus [Unknown]
  - Retinal detachment [Unknown]
  - Fatigue [Recovering/Resolving]
  - Asthenia [Unknown]
  - Nocturia [Unknown]
  - Myalgia [Unknown]
  - Onycholysis [Unknown]
  - Muscle spasms [Unknown]
  - Pain [Unknown]
  - Malaise [Unknown]
  - Hernia [Unknown]
  - Weight decreased [Unknown]
  - Decreased appetite [Recovering/Resolving]
  - Pruritus [Unknown]
  - Ear pain [Unknown]
  - Presyncope [Unknown]
  - Oesophageal pain [Unknown]
  - Peripheral sensory neuropathy [Recovering/Resolving]
  - Oedema peripheral [Unknown]
  - Pain [Unknown]
  - Constipation [Unknown]
  - Psoriasis [Unknown]
  - Bronchitis [Unknown]
  - Chest pain [Unknown]
  - Rash [Unknown]
  - Alopecia [Recovering/Resolving]
  - Pyrexia [Unknown]
  - Chest pain [Unknown]

NARRATIVE: CASE EVENT DATE: 20140101
